FAERS Safety Report 17960511 (Version 1)
Quarter: 2020Q2

REPORT INFORMATION
  Report Type: Spontaneous
  Country: CH (occurrence: CH)
  Receive Date: 20200630
  Receipt Date: 20200630
  Transmission Date: 20200714
  Serious: Yes (Hospitalization)
  Sender: FDA-Public Use
  Company Number: CH-TEVA-2020-CH-1793960

PATIENT
  Age: 17 Year
  Sex: Female

DRUGS (8)
  1. QUETIAPIN XR SPIRIG [Concomitant]
     Dosage: 300 MILLIGRAM DAILY;
     Route: 048
  2. TRAMADOL. [Suspect]
     Active Substance: TRAMADOL
     Dosage: 300 MILLIGRAM DAILY;
     Route: 048
     Dates: start: 20200603, end: 20200603
  3. NOVALGIN (METAMIZOLE SODIUM) [Suspect]
     Active Substance: METAMIZOLE SODIUM
     Dosage: 3 GRAM DAILY;
     Route: 048
     Dates: start: 20200603, end: 20200603
  4. NOVALGIN (METAMIZOLE SODIUM) [Suspect]
     Active Substance: METAMIZOLE SODIUM
     Dosage: TOOK AN UNKNOWN QUANTITY OF NOVALGIN 500 MG FOR SUICIDAL PURPOSES
     Route: 048
  5. DALMADORM [Concomitant]
     Active Substance: FLURAZEPAM HYDROCHLORIDE
     Dosage: 30 MILLIGRAM DAILY;
     Route: 048
  6. TRAMADOL. [Suspect]
     Active Substance: TRAMADOL
     Dosage: TOOK 10 TABLETS OF TRAMADOL MEPHA RETARD 150 MG IN A SINGLE DOSE FOR SUICIDAL PURPOSES
     Route: 048
  7. PANTOZOL [Concomitant]
     Active Substance: PANTOPRAZOLE SODIUM
     Dosage: 20 MILLIGRAM DAILY;
     Route: 048
  8. DEROXAT [Concomitant]
     Active Substance: PAROXETINE HYDROCHLORIDE
     Dosage: 20 MILLIGRAM DAILY;
     Route: 048

REACTIONS (2)
  - Suicide attempt [Recovered/Resolved]
  - Intentional overdose [Recovered/Resolved]

NARRATIVE: CASE EVENT DATE: 20200603
